FAERS Safety Report 6600015-9 (Version None)
Quarter: 2010Q1

REPORT INFORMATION
  Report Type: 
  Country: None (occurrence: None)
  Receive Date: 20100217
  Receipt Date: 20100129
  Transmission Date: 20100710
  Serious: Yes (Other)
  Sender: FDA-Public Use
  Company Number: 2010AP000191

PATIENT
  Sex: Male

DRUGS (1)
  1. CITALOPRAM HYDROBROMIDE [Suspect]
     Dosage: 10 MG; QID; 10 MG; BID
     Dates: end: 20100111

REACTIONS (5)
  - DEPRESSION [None]
  - DRUG DISPENSING ERROR [None]
  - FATIGUE [None]
  - IRRITABILITY [None]
  - WRONG DRUG ADMINISTERED [None]
